FAERS Safety Report 8035688-X (Version None)
Quarter: 2011Q4

REPORT INFORMATION
  Report Type: 
  Country: None (occurrence: None)
  Receive Date: 20111227
  Receipt Date: 20111219
  Transmission Date: 20120403
  Serious: Yes (Other)
  Sender: FDA-Public Use
  Company Number: US-1189119

PATIENT
  Sex: Female
  Weight: 58.9676 kg

DRUGS (8)
  1. NEVANAC [Suspect]
     Indication: CATARACT OPERATION
     Dosage: OPHTHALMIC
     Route: 047
  2. BSS [Suspect]
  3. BETADINE [Concomitant]
  4. BSS [Suspect]
     Indication: CATARACT OPERATION
     Dosage: INTRAOCULAR
     Route: 031
     Dates: start: 20111026, end: 20111026
  5. BSS [Suspect]
     Indication: CATARACT OPERATION
     Dosage: INTRAOCULAR
     Route: 031
     Dates: start: 20111026, end: 20111026
  6. ZYMAXID [Suspect]
     Indication: CATARACT OPERATION
     Dosage: OPHTHALMIC
     Route: 047
  7. PREDNISOLONE ACETATE [Concomitant]
     Indication: CATARACT OPERATION
     Dosage: OPHTHALMIC
     Route: 047
  8. TETRACAINE POLYGYL STERILE OPHTHALMIC SOLUTION [Suspect]
     Indication: CATARACT OPERATION
     Dosage: OPHTHALMIC
     Route: 047
     Dates: start: 20111026, end: 20111026

REACTIONS (3)
  - ENDOPHTHALMITIS [None]
  - CONJUNCTIVAL HAEMORRHAGE [None]
  - TOXIC ANTERIOR SEGMENT SYNDROME [None]
